FAERS Safety Report 6038558-1 (Version None)
Quarter: 2009Q1

REPORT INFORMATION
  Report Type: 
  Country: None (occurrence: None)
  Receive Date: 20090115
  Receipt Date: 20090107
  Transmission Date: 20090719
  Serious: Yes (Other)
  Sender: FDA-Public Use
  Company Number: US-ALLERGAN-0900154US

PATIENT
  Sex: Female

DRUGS (3)
  1. SANCTURA [Suspect]
     Indication: POLLAKIURIA
     Dosage: 20 MG, BID
     Route: 048
     Dates: start: 20081101
  2. COUMADIN [Concomitant]
     Indication: MYOCARDIAL INFARCTION
  3. COUMADIN [Concomitant]
     Indication: CEREBROVASCULAR ACCIDENT

REACTIONS (1)
  - KIDNEY INFECTION [None]
